FAERS Safety Report 6102792-2 (Version None)
Quarter: 2009Q1

REPORT INFORMATION
  Report Type: 
  Country: None (occurrence: None)
  Receive Date: 20090304
  Receipt Date: 20090226
  Transmission Date: 20090719
  Serious: No
  Sender: FDA-Public Use
  Company Number: US-B.I. PHARMACEUTICALS,INC./RIDGEFIELD-2009-BP-02529BP

PATIENT
  Sex: Female

DRUGS (7)
  1. SPIRIVA [Suspect]
  2. ATROVENT HFA [Suspect]
  3. COMBIVENT [Suspect]
  4. ALBUTEROL [Suspect]
  5. FORADIL [Suspect]
  6. PULMICORT-100 [Suspect]
  7. SODIUM CHLORIDE 3% [Suspect]

REACTIONS (1)
  - ADVERSE DRUG REACTION [None]
